FAERS Safety Report 21317270 (Version 4)
Quarter: 2023Q1

REPORT INFORMATION
  Report Type: Spontaneous
  Country: US (occurrence: US)
  Receive Date: 20220911
  Receipt Date: 20230224
  Transmission Date: 20230417
  Serious: No
  Sender: FDA-Public Use
  Company Number: US-SA-SAC20220824000111

PATIENT
  Age: 69 Year
  Sex: Female
  Weight: 127 kg

DRUGS (36)
  1. DUPIXENT [Suspect]
     Active Substance: DUPILUMAB
     Indication: Asthma
     Dosage: 300 MG, QOW
     Route: 058
  2. OZEMPIC [Suspect]
     Active Substance: SEMAGLUTIDE
     Dosage: UNK
  3. OFEV [Suspect]
     Active Substance: NINTEDANIB
     Dosage: UNK
  4. TRIAMCINOLONE ACETONIDE [Concomitant]
     Active Substance: TRIAMCINOLONE ACETONIDE
  5. NYSTATIN\TRIAMCINOLONE [Concomitant]
     Active Substance: NYSTATIN\TRIAMCINOLONE
  6. LORATADINE [Concomitant]
     Active Substance: LORATADINE
  7. LORAZEPAM [Concomitant]
     Active Substance: LORAZEPAM
  8. .GAMMA.-AMINOBUTYRIC ACID [Concomitant]
     Active Substance: .GAMMA.-AMINOBUTYRIC ACID
  9. FLUTICASONE PROPIONATE [Concomitant]
     Active Substance: FLUTICASONE PROPIONATE
  10. VITAMIN D3 [Concomitant]
     Active Substance: CHOLECALCIFEROL
  11. VITAMIN B COMPLEX WITH VITAMIN C [ASCORBIC ACID;VITAMIN B COMPLEX] [Concomitant]
  12. VALSARTAN [Concomitant]
     Active Substance: VALSARTAN
  13. TRAMADOL HCL [Concomitant]
     Active Substance: TRAMADOL HYDROCHLORIDE
  14. ROSUVASTATIN CALCIUM [Concomitant]
     Active Substance: ROSUVASTATIN CALCIUM
  15. OMEPRAZOLE [Concomitant]
     Active Substance: OMEPRAZOLE
  16. METOPROLOL SUCCINATE [Concomitant]
     Active Substance: METOPROLOL SUCCINATE
  17. MONTELUKAST SODIUM [Concomitant]
     Active Substance: MONTELUKAST SODIUM
  18. METFORMIN [Concomitant]
     Active Substance: METFORMIN HYDROCHLORIDE
  19. MELOXICAM [Concomitant]
     Active Substance: MELOXICAM
  20. LYSINE [Concomitant]
     Active Substance: LYSINE
  21. ACETAMINOPHEN\HYDROCODONE [Concomitant]
     Active Substance: ACETAMINOPHEN\HYDROCODONE
  22. CHONDROITIN SULFATE (BOVINE)\DIMETHYL SULFONE\GLUCOSAMINE SULFATE [Concomitant]
     Active Substance: CHONDROITIN SULFATE (BOVINE)\DIMETHYL SULFONE\GLUCOSAMINE SULFATE
  23. GABAPENTIN [Concomitant]
     Active Substance: GABAPENTIN
  24. ZINC [Concomitant]
     Active Substance: ZINC
  25. CALCIUM [Concomitant]
     Active Substance: CALCIUM
  26. HERBALS\WITHANIA SOMNIFERA ROOT [Concomitant]
     Active Substance: HERBALS\WITHANIA SOMNIFERA ROOT
  27. ALBUTEROL SULFATE [Concomitant]
     Active Substance: ALBUTEROL SULFATE
  28. ALPHA LIPOIC ACID [Concomitant]
     Active Substance: .ALPHA.-LIPOIC ACID
  29. ADVAIR HFA [Concomitant]
     Active Substance: FLUTICASONE PROPIONATE\SALMETEROL XINAFOATE
  30. NOPAL CACTUS [Concomitant]
  31. ACETYLCYSTEINE [Concomitant]
     Active Substance: ACETYLCYSTEINE
  32. DIGESTIVE ENZYME [AMYLASE;LIPASE;PROTEASE NOS] [Concomitant]
  33. MAGNESIUM [Concomitant]
     Active Substance: MAGNESIUM
  34. OXYGEN [Concomitant]
     Active Substance: OXYGEN
  35. ACETAMINOPHEN\HYDROCODONE [Concomitant]
     Active Substance: ACETAMINOPHEN\HYDROCODONE
  36. VITAMINA B7 [Concomitant]
     Dosage: 40MG

REACTIONS (5)
  - Nausea [Not Recovered/Not Resolved]
  - Decreased appetite [Unknown]
  - Vomiting [Not Recovered/Not Resolved]
  - Retching [Unknown]
  - Dysphagia [Unknown]
